FAERS Safety Report 5100061-0 (Version None)
Quarter: 2006Q3

REPORT INFORMATION
  Report Type: 
  Country: None (occurrence: None)
  Receive Date: 20060906
  Receipt Date: 20060823
  Transmission Date: 20061208
  Serious: Yes (Other)
  Sender: FDA-Public Use
  Company Number: 2006-08-1199

PATIENT
  Age: 56 Year
  Sex: Female
  Weight: 50 kg

DRUGS (16)
  1. POSACONAZOLE [Suspect]
     Indication: FUNGAL INFECTION
     Dosage: 400 MG; BID; PO
     Route: 048
     Dates: start: 20060724
  2. NORVASC [Concomitant]
  3. SODIUM BICARBONATE [Concomitant]
  4. EPOGEN [Concomitant]
  5. DUPHALAC [Concomitant]
  6. PREVACID [Concomitant]
  7. SYNTHROID [Concomitant]
  8. ZOLOFT [Concomitant]
  9. PREDNISONE [Concomitant]
  10. COLACE [Concomitant]
  11. MAGNESIUM OXIDE [Concomitant]
  12. LOPRESSOR [Concomitant]
  13. MULTI-VITAMIN [Concomitant]
  14. LOPRESSOR [Concomitant]
  15. MULTI-VITAMIN [Concomitant]
  16. HEPARIN [Concomitant]

REACTIONS (14)
  - ANOREXIA [None]
  - CONDITION AGGRAVATED [None]
  - DILATATION ATRIAL [None]
  - DISEASE PROGRESSION [None]
  - FUNGAL INFECTION [None]
  - HYPERKALAEMIA [None]
  - HYPOAESTHESIA [None]
  - PAIN [None]
  - SINUS CONGESTION [None]
  - SINUSITIS BACTERIAL [None]
  - SOFT TISSUE DISORDER [None]
  - SWELLING FACE [None]
  - VENTRICULAR HYPERTROPHY [None]
  - VISION BLURRED [None]
